FAERS Safety Report 18467847 (Version 2)
Quarter: 2020Q4

REPORT INFORMATION
  Report Type: Spontaneous
  Country: US (occurrence: US)
  Receive Date: 20201105
  Receipt Date: 20201111
  Transmission Date: 20210114
  Serious: Yes (Life-Threatening)
  Sender: FDA-Public Use
  Company Number: US-PFIZER INC-2020425521

PATIENT
  Age: 64 Year
  Sex: Male
  Weight: 94.98 kg

DRUGS (9)
  1. HALOPERIDOL. [Suspect]
     Active Substance: HALOPERIDOL
     Indication: AGITATION
     Dosage: 5 MG, 4X/DAY
     Dates: start: 20030510, end: 20030513
  2. CEFATRIZINE [Concomitant]
     Active Substance: CEFATRIZINE
     Dosage: 2 G, 1X/DAY
  3. CALCIUM ACETATE. [Concomitant]
     Active Substance: CALCIUM ACETATE
     Dosage: 667 MG, 3X/DAY
  4. METOPROLOL. [Concomitant]
     Active Substance: METOPROLOL
     Dosage: 100 MG, 2X/DAY
  5. FLUCONAZOLE. [Suspect]
     Active Substance: FLUCONAZOLE
     Indication: FUNGAL INFECTION
     Dosage: 400 MG, 2X/DAY
     Route: 042
     Dates: start: 20030510, end: 20030516
  6. METRONIDAZOLE. [Suspect]
     Active Substance: METRONIDAZOLE
     Dosage: 500 MG, 3X/DAY
     Route: 048
     Dates: start: 20030513, end: 20030518
  7. RISPERIDONE. [Suspect]
     Active Substance: RISPERIDONE
     Indication: SEDATION
     Dosage: 1 MG, SINGLE (1 MG BID ONLY GIVEN 1 DOSE)
     Dates: start: 20030513
  8. LANSOPRAZOLE. [Concomitant]
     Active Substance: LANSOPRAZOLE
     Dosage: UNK (LANSOPRAZOLE 30 MG)
  9. ALBUTEROL [SALBUTAMOL] [Concomitant]
     Active Substance: ALBUTEROL
     Dosage: UNK

REACTIONS (4)
  - Torsade de pointes [Recovered/Resolved]
  - Pulse absent [Recovered/Resolved]
  - Off label use [Unknown]
  - Cardio-respiratory arrest [Recovered/Resolved]

NARRATIVE: CASE EVENT DATE: 20030510
